FAERS Safety Report 7454422-5 (Version None)
Quarter: 2011Q2

REPORT INFORMATION
  Report Type: 
  Country: None (occurrence: None)
  Receive Date: 20110425
  Receipt Date: 20110422
  Transmission Date: 20111010
  Serious: Yes (Death, Life-Threatening)
  Sender: FDA-Public Use
  Company Number: IND1-FR-2011-0015

PATIENT
  Age: 67 Year
  Sex: Male

DRUGS (2)
  1. SULFASALAZINE [Suspect]
     Indication: ANKYLOSING SPONDYLITIS
     Dosage: GRADUALLY INCREASING DOSE, ORAL
     Route: 048
     Dates: start: 20110111, end: 20110124
  2. INDOMETHACIN [Suspect]
     Indication: PRODUCT USED FOR UNKNOWN INDICATION
     Dosage: 75 MG, ORAL
     Route: 048
     Dates: start: 20110111, end: 20110124

REACTIONS (4)
  - HYPOXIC-ISCHAEMIC ENCEPHALOPATHY [None]
  - RESPIRATORY DISTRESS [None]
  - DYSPNOEA EXERTIONAL [None]
  - CARDIAC ARREST [None]
